FAERS Safety Report 15584205 (Version 1)
Quarter: 2018Q4

REPORT INFORMATION
  Report Type: Spontaneous
  Country: US (occurrence: US)
  Receive Date: 20181104
  Receipt Date: 20181104
  Transmission Date: 20190205
  Serious: Yes (Death, Other)
  Sender: FDA-Public Use
  Company Number: PHHY2018US143743

PATIENT
  Age: 30 Week
  Sex: Male

DRUGS (3)
  1. TACROLIMUS. [Suspect]
     Active Substance: TACROLIMUS
     Indication: PROPHYLAXIS AGAINST GRAFT VERSUS HOST DISEASE
     Dosage: UNK
     Route: 065
  2. MYCOPHENOLATE MOFETIL. [Suspect]
     Active Substance: MYCOPHENOLATE MOFETIL
     Indication: PROPHYLAXIS AGAINST GRAFT VERSUS HOST DISEASE
     Dosage: UNK
     Route: 065
  3. HYDROCORTISONE. [Concomitant]
     Active Substance: HYDROCORTISONE
     Indication: PRODUCT USED FOR UNKNOWN INDICATION
     Dosage: STRESS DOSE
     Route: 065

REACTIONS (10)
  - Acute kidney injury [Unknown]
  - Hypoxia [Unknown]
  - Klebsiella infection [Unknown]
  - Temperature regulation disorder [Unknown]
  - Graft versus host disease in gastrointestinal tract [Unknown]
  - Cardio-respiratory arrest [Fatal]
  - Acute respiratory distress syndrome [Unknown]
  - Vomiting [Unknown]
  - Tachycardia [Unknown]
  - Necrotising fasciitis [Unknown]
